FAERS Safety Report 4373386-4 (Version None)
Quarter: 2004Q2

REPORT INFORMATION
  Report Type: 
  Country: None (occurrence: None)
  Receive Date: 20040603
  Receipt Date: 20040526
  Transmission Date: 20050107
  Serious: Yes (Hospitalization)
  Sender: FDA-Public Use
  Company Number: STA-AE-04-MTX-200

PATIENT
  Age: 46 Year
  Sex: Female

DRUGS (7)
  1. METHOTREXATE [Suspect]
     Indication: RHEUMATOID ARTHRITIS
     Dosage: 17.5 MG 1 X PER 1 WK, ORAL
     Route: 048
     Dates: start: 20030103
  2. ENBREL [Suspect]
     Indication: RHEUMATOID ARTHRITIS
     Dosage: 25 MG 2X PER 1 WK
     Dates: start: 20030101, end: 20030401
  3. PREDNISONE TAB [Suspect]
     Indication: RHEUMATOID ARTHRITIS
     Dosage: 5 MG 1X PER 1 DAY, ORAL
     Route: 048
     Dates: start: 20021211
  4. DIOVAN HCT [Concomitant]
  5. DYAZIDE [Concomitant]
  6. XANAX [Concomitant]
  7. NORTRIPTYLINE HCL [Concomitant]

REACTIONS (1)
  - COLON CANCER [None]
